FAERS Safety Report 15347079 (Version 3)
Quarter: 2018Q4

REPORT INFORMATION
  Report Type: Spontaneous
  Country: ES (occurrence: ES)
  Receive Date: 20180904
  Receipt Date: 20181120
  Transmission Date: 20190204
  Serious: Yes (Hospitalization)
  Sender: FDA-Public Use
  Company Number: ES-PFIZER INC-2018348804

PATIENT
  Age: 70 Year
  Sex: Female

DRUGS (5)
  1. CYCLOPHOSPHAMIDE. [Concomitant]
     Active Substance: CYCLOPHOSPHAMIDE
     Indication: NON-HODGKIN^S LYMPHOMA STAGE IV
     Dosage: UNK UNK, CYCLIC (6 CYCLES)
  2. RITUXIMAB. [Concomitant]
     Active Substance: RITUXIMAB
     Indication: NON-HODGKIN^S LYMPHOMA STAGE IV
     Dosage: UNK UNK, CYCLIC (6 CYCLES)
  3. VINCRISTINE SULFATE. [Concomitant]
     Active Substance: VINCRISTINE SULFATE
     Indication: NON-HODGKIN^S LYMPHOMA STAGE IV
     Dosage: UNK UNK, CYCLIC (6 CYCLES)
  4. DOXORUBICIN HCL [Suspect]
     Active Substance: DOXORUBICIN HYDROCHLORIDE
     Indication: NON-HODGKIN^S LYMPHOMA STAGE IV
     Dosage: UNK UNK, CYCLIC (6 CYCLES)
  5. PREDNISONE. [Concomitant]
     Active Substance: PREDNISONE
     Indication: NON-HODGKIN^S LYMPHOMA STAGE IV
     Dosage: UNK UNK, CYCLIC (6 CYCLES)

REACTIONS (9)
  - Ejection fraction decreased [Recovering/Resolving]
  - Cardiotoxicity [Recovering/Resolving]
  - Pulmonary hypertension [Recovering/Resolving]
  - Mitral valve incompetence [Recovering/Resolving]
  - Cough [Recovering/Resolving]
  - Cardiomyopathy [Recovering/Resolving]
  - Bronchial disorder [Recovering/Resolving]
  - Dyspnoea [Recovering/Resolving]
  - Cardiac failure congestive [Recovering/Resolving]
